FAERS Safety Report 18574379 (Version 1)
Quarter: 2020Q4

REPORT INFORMATION
  Report Type: Report from Study
  Country: PL (occurrence: PL)
  Receive Date: 20201203
  Receipt Date: 20201203
  Transmission Date: 20210114
  Serious: Yes (Hospitalization, Other)
  Sender: FDA-Public Use
  Company Number: PL-GW PHARMA-201712PLGW0652

PATIENT

DRUGS (16)
  1. DEPAKINE CHRONOSPHERE [Concomitant]
     Active Substance: VALPROIC ACID
     Dosage: 100 MG AM AND 200 MG PM
     Route: 048
     Dates: start: 20171120
  2. ULTOP [OMEPRAZOLE] [Concomitant]
     Indication: GASTROOESOPHAGEAL REFLUX DISEASE
     Dosage: 10 MILLIGRAM, QD
     Route: 048
     Dates: start: 201705
  3. DICOFLOR [LACTOBACILLUS RHAMNOSUS] [Concomitant]
     Indication: SUPPLEMENTATION THERAPY
     Dosage: 5 DROP, QD
     Route: 048
     Dates: start: 20171126
  4. EPIDIOLEX [Suspect]
     Active Substance: CANNABIDIOL
     Indication: SEVERE MYOCLONIC EPILEPSY OF INFANCY
     Dosage: 20 MG/KG, 236 MILLIGRAM, QD
     Route: 048
     Dates: start: 20171116, end: 20180222
  5. KOENZYM Q10 [Concomitant]
     Indication: SUPPLEMENTATION THERAPY
     Dosage: 30 MILLIGRAM, QD
     Route: 048
     Dates: start: 201705
  6. FUROSEMIDE. [Concomitant]
     Active Substance: FUROSEMIDE
     Indication: PRODUCT USED FOR UNKNOWN INDICATION
     Dosage: UNK
     Dates: start: 201711, end: 201712
  7. DIACOMIT [Concomitant]
     Active Substance: STIRIPENTOL
     Indication: SEVERE MYOCLONIC EPILEPSY OF INFANCY
     Dosage: 150 MILLIGRAM, TID
     Route: 048
     Dates: start: 201703, end: 20171201
  8. CARNITINE [Concomitant]
     Active Substance: CARNITINE
     Indication: SUPPLEMENTATION THERAPY
     Dosage: 0.5 DOSAGE FORM, BID
     Route: 048
     Dates: start: 201705
  9. DEPAKINE CHRONOSPHERE [Concomitant]
     Active Substance: VALPROIC ACID
     Dosage: 250 MILLIGRAM, QD (100 MG AND 150 MG)
     Route: 048
     Dates: start: 20171102, end: 20171119
  10. EUTHYROX [Concomitant]
     Active Substance: LEVOTHYROXINE SODIUM
     Indication: HYPOTHYROIDISM
     Dosage: 12.5 MICROGRAM, QD
     Route: 065
     Dates: start: 201703
  11. ULTOP [OMEPRAZOLE] [Concomitant]
     Dosage: UNK
  12. KEPPRA [Concomitant]
     Active Substance: LEVETIRACETAM
     Dosage: 450 MILLIGRAM, QD (250 MG AND 200 MG)
     Route: 048
     Dates: start: 20171109, end: 20171123
  13. KEPPRA [Concomitant]
     Active Substance: LEVETIRACETAM
     Indication: SEVERE MYOCLONIC EPILEPSY OF INFANCY
     Dosage: 250 MILLIGRAM, BID
     Route: 048
     Dates: start: 201708, end: 20171109
  14. KEPPRA [Concomitant]
     Active Substance: LEVETIRACETAM
     Dosage: 360 MILLIGRAM, QD (160 MG AND 200 MG)
     Route: 048
     Dates: start: 20171123
  15. DEPAKINE CHRONOSPHERE [Concomitant]
     Active Substance: VALPROIC ACID
     Indication: SEVERE MYOCLONIC EPILEPSY OF INFANCY
     Dosage: 100 MILLIGRAM, BID
     Route: 048
     Dates: start: 201611, end: 20171102
  16. DIACOMIT [Concomitant]
     Active Substance: STIRIPENTOL
     Dosage: 150 MG BID, 100 MG QD
     Route: 048
     Dates: start: 20171201

REACTIONS (1)
  - Decreased appetite [Not Recovered/Not Resolved]

NARRATIVE: CASE EVENT DATE: 20171129
